FAERS Safety Report 9450569 (Version 1)
Quarter: 2013Q3

REPORT INFORMATION
  Report Type: Report from Study
  Country: IT (occurrence: IT)
  Receive Date: 20130809
  Receipt Date: 20130809
  Transmission Date: 20140515
  Serious: Yes (Death, Other)
  Sender: FDA-Public Use
  Company Number: IT-GLAXOSMITHKLINE-B0804975A

PATIENT
  Age: 66 Year
  Sex: Male
  Weight: 69 kg

DRUGS (6)
  1. MELPHALAN [Suspect]
     Indication: PLASMA CELL MYELOMA
     Dosage: 16MG PER DAY
     Route: 048
     Dates: start: 20091015, end: 20110322
  2. THALIDOMIDE [Suspect]
     Indication: PLASMA CELL MYELOMA
     Dosage: 200MG PER DAY
     Route: 048
     Dates: start: 20091015, end: 20110322
  3. PREDNISONE [Suspect]
     Indication: PLASMA CELL MYELOMA
     Dosage: 135MG PER DAY
     Route: 048
     Dates: start: 20091015, end: 20110322
  4. COVERSYL [Concomitant]
     Indication: HYPERTENSION
     Dosage: 5MG PER DAY
     Route: 048
     Dates: start: 2005
  5. CARDIOASPIRIN [Concomitant]
     Indication: THROMBOSIS PROPHYLAXIS
     Dosage: 100MG PER DAY
     Route: 048
     Dates: start: 20091015
  6. LANSOX [Concomitant]
     Indication: PROPHYLAXIS
     Dosage: 30MG PER DAY
     Route: 048
     Dates: start: 20091015

REACTIONS (1)
  - Myelodysplastic syndrome [Fatal]
